FAERS Safety Report 11156122 (Version 1)
Quarter: 2015Q2

REPORT INFORMATION
  Report Type: Report from Study
  Country: US (occurrence: US)
  Receive Date: 20150602
  Receipt Date: 20150602
  Transmission Date: 20150821
  Serious: Yes (Other)
  Sender: FDA-Public Use
  Company Number: US-CELGENEUS-USA-2015055200

PATIENT
  Age: 59 Year
  Sex: Male
  Weight: 64.86 kg

DRUGS (3)
  1. THALOMID [Suspect]
     Active Substance: THALIDOMIDE
     Indication: PLASMA CELL MYELOMA
     Dosage: 150 MILLIGRAM
     Route: 048
     Dates: end: 20150202
  2. BORTEZOMIB [Concomitant]
     Active Substance: BORTEZOMIB
     Indication: PLASMA CELL MYELOMA
     Route: 065
     Dates: end: 20150202
  3. DEXAMETHASONE. [Concomitant]
     Active Substance: DEXAMETHASONE
     Indication: PLASMA CELL MYELOMA
     Route: 065
     Dates: end: 20150202

REACTIONS (17)
  - Insomnia [Unknown]
  - Muscular weakness [Unknown]
  - Pulmonary hypertension [Unknown]
  - Dyspnoea [Unknown]
  - Decreased appetite [Unknown]
  - Hypoaesthesia [Unknown]
  - Rash [Unknown]
  - Weight decreased [Unknown]
  - Anaemia [Unknown]
  - Diarrhoea [Unknown]
  - Night sweats [Unknown]
  - Dizziness [Unknown]
  - Upper respiratory tract infection [Unknown]
  - Muscle spasms [Unknown]
  - Vomiting [Unknown]
  - Dry skin [Unknown]
  - Anxiety [Unknown]

NARRATIVE: CASE EVENT DATE: 20150126
